FAERS Safety Report 5753493-1 (Version None)
Quarter: 2008Q2

REPORT INFORMATION
  Report Type: 
  Country: None (occurrence: None)
  Receive Date: 20080530
  Receipt Date: 20080521
  Transmission Date: 20081010
  Serious: Yes (Life-Threatening, Hospitalization)
  Sender: FDA-Public Use
  Company Number: FR-AMGEN-UK275813

PATIENT
  Sex: Female

DRUGS (4)
  1. NEULASTA [Suspect]
     Indication: CHEMOTHERAPY
     Route: 058
     Dates: start: 20080123
  2. ETOPOSIDE [Concomitant]
     Route: 065
     Dates: start: 20080121
  3. CISPLATYL [Concomitant]
     Route: 065
     Dates: start: 20080121
  4. RADIATION THERAPY [Concomitant]
     Dates: start: 20080130

REACTIONS (3)
  - DRUG INEFFECTIVE [None]
  - FEBRILE NEUTROPENIA [None]
  - MALIGNANT NEOPLASM PROGRESSION [None]
